FAERS Safety Report 6575269-8 (Version None)
Quarter: 2010Q1

REPORT INFORMATION
  Report Type: 
  Country: None (occurrence: None)
  Receive Date: 20100209
  Receipt Date: 20100129
  Transmission Date: 20100710
  Serious: Yes (Hospitalization)
  Sender: FDA-Public Use
  Company Number: NL-ROCHE-649653

PATIENT
  Sex: Female
  Weight: 67 kg

DRUGS (6)
  1. TOCILIZUMAB [Suspect]
     Indication: RHEUMATOID ARTHRITIS
     Dosage: LAST DOSE PRIOR TO SAE: 04 AUGUST 2009; PERMANENTLY DISCONTINUED; FORM: INFUSION
     Route: 042
     Dates: start: 20090804, end: 20090811
  2. METHOTREXATE [Concomitant]
     Dates: start: 19980101
  3. FOLIC ACID [Concomitant]
     Dates: start: 19980101
  4. LANSOPRAZOLE [Concomitant]
     Dates: start: 19980101
  5. ALCLOFENAC [Concomitant]
     Dates: start: 19950101
  6. PARACETAMOL [Concomitant]
     Dates: start: 19950101

REACTIONS (1)
  - BURSITIS INFECTIVE [None]
